FAERS Safety Report 9511311 (Version 1)
Quarter: 2013Q3

REPORT INFORMATION
  Report Type: Spontaneous
  Country: US (occurrence: US)
  Receive Date: 20130910
  Receipt Date: 20130910
  Transmission Date: 20140515
  Serious: No
  Sender: FDA-Public Use
  Company Number: US-TEVA-431044USA

PATIENT
  Age: 26 Year
  Sex: Female
  Weight: 46.31 kg

DRUGS (1)
  1. PLAN B ONE-STEP [Suspect]
     Indication: CONTRACEPTION
     Route: 048
     Dates: start: 20130901, end: 20130901

REACTIONS (3)
  - Metrorrhagia [Unknown]
  - Abdominal pain [Unknown]
  - Nausea [Unknown]
